FAERS Safety Report 10003577 (Version 1)
Quarter: 2014Q1

REPORT INFORMATION
  Report Type: Spontaneous
  Country: US (occurrence: US)
  Receive Date: 20140312
  Receipt Date: 20140312
  Transmission Date: 20141002
  Serious: Yes (Hospitalization)
  Sender: FDA-Public Use
  Company Number: US-LUNDBECK-DKLU1098078

PATIENT
  Age: 3 Year
  Sex: Male

DRUGS (1)
  1. SABRIL (FOR ORAL SOLUTION) [Suspect]
     Indication: GRAND MAL CONVULSION
     Route: 048
     Dates: start: 201312

REACTIONS (1)
  - Tonsillectomy [Unknown]
